FAERS Safety Report 11930382 (Version 1)
Quarter: 2016Q1

REPORT INFORMATION
  Report Type: Spontaneous
  Country: US (occurrence: None)
  Receive Date: 20160120
  Receipt Date: 20160120
  Transmission Date: 20160526
  Serious: Yes (Hospitalization)
  Sender: FDA-Public Use
  Company Number: None

PATIENT
  Age: 74 Year
  Sex: Male
  Weight: 89 kg

DRUGS (2)
  1. PREDNISONE. [Suspect]
     Active Substance: PREDNISONE
     Indication: RHEUMATOID ARTHRITIS
     Dosage: AM
     Route: 048
     Dates: start: 20140926
  2. MELOXICAM. [Suspect]
     Active Substance: MELOXICAM
     Indication: RHEUMATOID ARTHRITIS
     Route: 048
     Dates: start: 20140827, end: 20151130

REACTIONS (6)
  - Chest pain [None]
  - Large intestine polyp [None]
  - Hiatus hernia [None]
  - Iron deficiency anaemia [None]
  - Dyspnoea [None]
  - Anaemia vitamin B12 deficiency [None]

NARRATIVE: CASE EVENT DATE: 20151030
